FAERS Safety Report 8441005-3 (Version None)
Quarter: 2012Q2

REPORT INFORMATION
  Report Type: 
  Country: None (occurrence: None)
  Receive Date: 20120615
  Receipt Date: 20110701
  Transmission Date: 20120825
  Serious: No
  Sender: FDA-Public Use
  Company Number: US-NOVEN-11US002747

PATIENT
  Sex: Male
  Weight: 34.014 kg

DRUGS (3)
  1. TRAZODONE HCL [Concomitant]
     Indication: INSOMNIA
     Dosage: 25 MG, UNKNOWN
     Route: 048
  2. DAYTRANA [Suspect]
     Indication: ATTENTION DEFICIT/HYPERACTIVITY DISORDER
     Dosage: 15 MG, QD FOR 9 HRS
     Route: 062
     Dates: start: 20110628
  3. INTUNIV [Concomitant]
     Indication: ATTENTION DEFICIT/HYPERACTIVITY DISORDER
     Dosage: 3 MG, UNKNOWN
     Route: 048

REACTIONS (3)
  - PRODUCT QUALITY ISSUE [None]
  - APPLICATION SITE PAIN [None]
  - DRUG ADMINISTRATION ERROR [None]
